FAERS Safety Report 16642433 (Version 2)
Quarter: 2019Q3

REPORT INFORMATION
  Report Type: Spontaneous
  Country: US (occurrence: US)
  Receive Date: 20190729
  Receipt Date: 20190906
  Transmission Date: 20191004
  Serious: No
  Sender: FDA-Public Use
  Company Number: US-MYLANLABS-2019M1065440

PATIENT
  Sex: Female
  Weight: 71 kg

DRUGS (1)
  1. ESTRADIOL TRANSDERMAL SYSTEM [Suspect]
     Active Substance: ESTRADIOL
     Indication: HORMONE REPLACEMENT THERAPY
     Dosage: 0.1 MG/DAY, TWICE WEEKLY (BIWEEKLY)
     Route: 062

REACTIONS (2)
  - Application site erythema [None]
  - Application site rash [Not Recovered/Not Resolved]

NARRATIVE: CASE EVENT DATE: 2019
